FAERS Safety Report 12464200 (Version 1)
Quarter: 2016Q2

REPORT INFORMATION
  Report Type: Spontaneous
  Country: US (occurrence: None)
  Receive Date: 20160613
  Receipt Date: 20160613
  Transmission Date: 20160815
  Serious: Yes (Life-Threatening, Other)
  Sender: FDA-Public Use
  Company Number: None

PATIENT
  Age: 34 Year
  Sex: Male
  Weight: 181.44 kg

DRUGS (7)
  1. VITAMIN D [Concomitant]
     Active Substance: CHOLECALCIFEROL
  2. VITAMIN B12 [Concomitant]
     Active Substance: CYANOCOBALAMIN
  3. LATUDA [Suspect]
     Active Substance: LURASIDONE HYDROCHLORIDE
     Indication: BIPOLAR DISORDER
     Dosage: 30 TABLET(S) AT BEDTIME TAKEN BY MOUTH
     Route: 048
  4. LORAZEPAM. [Concomitant]
     Active Substance: LORAZEPAM
  5. SAPHRIS [Concomitant]
     Active Substance: ASENAPINE MALEATE
  6. SERTRALINE [Concomitant]
     Active Substance: SERTRALINE HYDROCHLORIDE
  7. BENZTROPINE [Concomitant]
     Active Substance: BENZTROPINE

REACTIONS (14)
  - Neuroleptic malignant syndrome [None]
  - Seizure [None]
  - Delusion [None]
  - Anxiety [None]
  - Pain [None]
  - Diplopia [None]
  - Self-injurious ideation [None]
  - Tardive dyskinesia [None]
  - Blindness [None]
  - Hallucination [None]
  - Dyskinesia [None]
  - Headache [None]
  - Loss of consciousness [None]
  - Blood pressure fluctuation [None]

NARRATIVE: CASE EVENT DATE: 20160415
